FAERS Safety Report 25080866 (Version 1)
Quarter: 2025Q1

REPORT INFORMATION
  Report Type: Spontaneous
  Country: GB (occurrence: GB)
  Receive Date: 20250315
  Receipt Date: 20250315
  Transmission Date: 20250408
  Serious: Yes (Disabling, Other)
  Sender: AUROBINDO
  Company Number: GB-MHRA-MED-202502270723517780-NTSWG

PATIENT
  Age: 39 Year
  Sex: Female

DRUGS (3)
  1. AMLODIPINE [Suspect]
     Active Substance: AMLODIPINE BESYLATE
     Indication: Product used for unknown indication
     Dosage: 5 MILLIGRAM, ONCE A DAY
     Route: 065
  2. RAMIPRIL [Concomitant]
     Active Substance: RAMIPRIL
     Indication: Adverse drug reaction
     Route: 065
  3. BETAHISTINE [Concomitant]
     Active Substance: BETAHISTINE
     Indication: Adverse drug reaction
     Route: 065

REACTIONS (1)
  - Migraine [Not Recovered/Not Resolved]

NARRATIVE: CASE EVENT DATE: 20250202
